FAERS Safety Report 8536302-7 (Version None)
Quarter: 2012Q3

REPORT INFORMATION
  Report Type: 
  Country: None (occurrence: None)
  Receive Date: 20120725
  Receipt Date: 20120718
  Transmission Date: 20120928
  Serious: No
  Sender: FDA-Public Use
  Company Number: FI-SANOFI-AVENTIS-2012SA051263

PATIENT
  Sex: Female

DRUGS (1)
  1. ARAVA [Suspect]
     Route: 067

REACTIONS (1)
  - EXPOSURE VIA FATHER [None]
